FAERS Safety Report 9014673 (Version 2)
Quarter: 2013Q1

REPORT INFORMATION
  Report Type: Spontaneous
  Country: US (occurrence: US)
  Receive Date: 20130115
  Receipt Date: 20130322
  Transmission Date: 20140127
  Serious: Yes (Hospitalization)
  Sender: FDA-Public Use
  Company Number: US-BAYER-2013-003852

PATIENT
  Age: 20 Year
  Sex: Female
  Weight: 77.1 kg

DRUGS (6)
  1. YAZ [Suspect]
     Dosage: UNK
  2. METFORMIN [Concomitant]
     Dosage: UNK
  3. ZOFRAN [Concomitant]
     Dosage: UNK
  4. MORPHINE [Concomitant]
     Dosage: UNK
  5. TORADOL [Concomitant]
     Dosage: UNK
  6. LOPID [Concomitant]
     Dosage: UNK

REACTIONS (1)
  - Pulmonary embolism [None]
